FAERS Safety Report 7172224-4 (Version None)
Quarter: 2010Q4

REPORT INFORMATION
  Report Type: 
  Country: None (occurrence: None)
  Receive Date: 20101217
  Receipt Date: 20100202
  Transmission Date: 20110411
  Serious: No
  Sender: FDA-Public Use
  Company Number: US-AMGEN-KDL390231

PATIENT

DRUGS (8)
  1. ENBREL [Suspect]
     Indication: RHEUMATOID ARTHRITIS
     Dosage: 50 MG, QWK
     Route: 058
  2. METHOTREXATE [Concomitant]
     Dosage: 2.5 MG, UNK
     Route: 048
  3. PREDNISONE [Concomitant]
     Dosage: 5 MG, UNK
     Route: 048
  4. LOVASTATIN [Concomitant]
     Dosage: 20 MG, UNK
     Route: 048
  5. FOLIC ACID [Concomitant]
     Dosage: 1 MG, UNK
     Route: 048
  6. CALCIUM [Concomitant]
     Dosage: UNK UNK, UNK
     Route: 048
  7. MULTI-VITAMINS [Concomitant]
     Dosage: UNK UNK, UNK
     Route: 048
  8. ACETYLSALICYLIC ACID [Concomitant]
     Dosage: 81 MG, UNK
     Route: 048

REACTIONS (2)
  - INJECTION SITE ERYTHEMA [None]
  - RASH GENERALISED [None]
